FAERS Safety Report 14551544 (Version 4)
Quarter: 2018Q2

REPORT INFORMATION
  Report Type: Report from Study
  Country: CA (occurrence: CA)
  Receive Date: 20180220
  Receipt Date: 20180522
  Transmission Date: 20180711
  Serious: Yes (Hospitalization, Other)
  Sender: FDA-Public Use
  Company Number: CA-BRISTOL-MYERS SQUIBB COMPANY-BMS-2017-027288

PATIENT
  Age: 76 Year
  Sex: Female

DRUGS (1)
  1. ABATACEPT [Suspect]
     Active Substance: ABATACEPT
     Indication: RHEUMATOID ARTHRITIS
     Dosage: 1000 MG, QMO
     Route: 042
     Dates: start: 20131121

REACTIONS (18)
  - Confusional state [Recovering/Resolving]
  - Colitis [Unknown]
  - Contusion [Recovering/Resolving]
  - Ovarian cyst [Not Recovered/Not Resolved]
  - Cystitis [Recovered/Resolved]
  - Vomiting [Unknown]
  - Hyperkeratosis [Not Recovered/Not Resolved]
  - Rash [Recovering/Resolving]
  - Myocardial infarction [Unknown]
  - Nausea [Unknown]
  - Eating disorder [Unknown]
  - Eye infection [Unknown]
  - Foot deformity [Unknown]
  - Pulmonary mass [Not Recovered/Not Resolved]
  - Metastatic neoplasm [Unknown]
  - Fall [Recovering/Resolving]
  - Weight decreased [Unknown]
  - Rheumatoid arthritis [Recovering/Resolving]

NARRATIVE: CASE EVENT DATE: 20170327
